FAERS Safety Report 14829751 (Version 1)
Quarter: 2018Q2

REPORT INFORMATION
  Report Type: Spontaneous
  Country: JP (occurrence: JP)
  Receive Date: 20180430
  Receipt Date: 20180430
  Transmission Date: 20180711
  Serious: Yes (Other)
  Sender: FDA-Public Use
  Company Number: JP-BAYER-2018-077822

PATIENT
  Sex: Female

DRUGS (1)
  1. STIVARGA [Suspect]
     Active Substance: REGORAFENIB
     Indication: HEPATIC CANCER
     Dosage: 80 MG, QD
     Route: 048
     Dates: start: 20180228

REACTIONS (2)
  - Cerebral infarction [None]
  - Hepatic function abnormal [None]

NARRATIVE: CASE EVENT DATE: 201803
